FAERS Safety Report 6114332-2 (Version None)
Quarter: 2009Q1

REPORT INFORMATION
  Report Type: 
  Country: None (occurrence: None)
  Receive Date: 20090312
  Receipt Date: 20090203
  Transmission Date: 20090719
  Serious: No
  Sender: FDA-Public Use
  Company Number: US-ABBOTT-09P-163-0500942-00

PATIENT
  Sex: Female
  Weight: 108.05 kg

DRUGS (2)
  1. DEPAKOTE [Suspect]
     Indication: POLYNEUROPATHY
     Dates: start: 19960101, end: 19970101
  2. RISPERDAL [Suspect]
     Indication: DRUG USE FOR UNKNOWN INDICATION
     Dates: start: 19960101

REACTIONS (4)
  - BLOOD TRIGLYCERIDES INCREASED [None]
  - HYPERTENSION [None]
  - TYPE 2 DIABETES MELLITUS [None]
  - WEIGHT INCREASED [None]
